FAERS Safety Report 4503089-4 (Version None)
Quarter: 2004Q4

REPORT INFORMATION
  Report Type: 
  Country: None (occurrence: None)
  Receive Date: 20041117
  Receipt Date: 20040824
  Transmission Date: 20050328
  Serious: Yes (Life-Threatening, Hospitalization)
  Sender: FDA-Public Use
  Company Number: DE-ROCHE-378561

PATIENT
  Age: 14 Year
  Sex: Male
  Weight: 47 kg

DRUGS (9)
  1. CELLCEPT [Suspect]
     Route: 048
     Dates: start: 20040321, end: 20040804
  2. DECORTIN H [Concomitant]
     Indication: IMMUNOSUPPRESSION
  3. SANDIMMUNE [Concomitant]
     Indication: IMMUNOSUPPRESSION
  4. METOPROLOL [Concomitant]
  5. LORZAAR [Concomitant]
  6. NEPRESOL [Concomitant]
  7. DELIX [Concomitant]
  8. CEFACLOR [Concomitant]
     Indication: INFECTION PROPHYLAXIS
  9. CERTICAN [Concomitant]
     Indication: IMMUNOSUPPRESSION

REACTIONS (8)
  - AGRANULOCYTOSIS [None]
  - APLASTIC ANAEMIA [None]
  - BONE MARROW DEPRESSION [None]
  - KIDNEY TRANSPLANT REJECTION [None]
  - LYMPHADENOPATHY [None]
  - PANCYTOPENIA [None]
  - PYREXIA [None]
  - SEPSIS [None]
